FAERS Safety Report 6609490-7 (Version None)
Quarter: 2010Q1

REPORT INFORMATION
  Report Type: 
  Country: None (occurrence: None)
  Receive Date: 20100302
  Receipt Date: 20100219
  Transmission Date: 20100710
  Serious: Yes (Hospitalization)
  Sender: FDA-Public Use
  Company Number: US-JNJFOC-20100210278

PATIENT
  Age: 5 Year
  Sex: Male

DRUGS (3)
  1. IBUPROFEN [Suspect]
     Indication: PYREXIA
  2. TYLENOL (CAPLET) [Suspect]
  3. TYLENOL (CAPLET) [Suspect]
     Indication: PYREXIA

REACTIONS (4)
  - HEPATIC ENZYME INCREASED [None]
  - INCORRECT DOSE ADMINISTERED [None]
  - PNEUMONIA [None]
  - PROTHROMBIN TIME PROLONGED [None]
